FAERS Safety Report 17442126 (Version 5)
Quarter: 2020Q2

REPORT INFORMATION
  Report Type: Spontaneous
  Country: IT (occurrence: IT)
  Receive Date: 20200220
  Receipt Date: 20200415
  Transmission Date: 20200713
  Serious: Yes (Other)
  Sender: FDA-Public Use
  Company Number: IT-JNJFOC-20200226730

PATIENT
  Age: 43 Year
  Sex: Male

DRUGS (1)
  1. SYMTUZA [Suspect]
     Active Substance: COBICISTAT\DARUNAVIR\EMTRICITABINE\TENOFOVIR ALAFENAMIDE
     Indication: ACUTE HIV INFECTION
     Route: 048
     Dates: start: 20180101, end: 20200205

REACTIONS (4)
  - Hepatic steatosis [Unknown]
  - Dyslipidaemia [Unknown]
  - Drug ineffective [Unknown]
  - Blood HIV RNA increased [Unknown]

NARRATIVE: CASE EVENT DATE: 20191118
